FAERS Safety Report 26180710 (Version 1)
Quarter: 2025Q4

REPORT INFORMATION
  Report Type: Spontaneous
  Country: EU (occurrence: EU)
  Receive Date: 20251219
  Receipt Date: 20251219
  Transmission Date: 20260118
  Serious: Yes (Other)
  Sender: BIOCON
  Company Number: EU-MIMS-BCONMC-20428

PATIENT

DRUGS (4)
  1. HULIO [Suspect]
     Active Substance: ADALIMUMAB-FKJP
     Indication: Rheumatic disorder
     Dosage: UNK
     Route: 065
  2. HULIO [Suspect]
     Active Substance: ADALIMUMAB-FKJP
  3. HULIO [Suspect]
     Active Substance: ADALIMUMAB-FKJP
  4. HULIO [Suspect]
     Active Substance: ADALIMUMAB-FKJP

REACTIONS (6)
  - Rheumatoid arthritis [Unknown]
  - Peripheral swelling [Unknown]
  - Acne [Unknown]
  - Pain in extremity [Unknown]
  - Pruritus [Unknown]
  - Injection site swelling [Unknown]
